FAERS Safety Report 14342103 (Version 1)
Quarter: 2018Q1

REPORT INFORMATION
  Report Type: Spontaneous
  Country: FR (occurrence: FR)
  Receive Date: 20180102
  Receipt Date: 20180102
  Transmission Date: 20180509
  Serious: Yes (Other)
  Sender: FDA-Public Use
  Company Number: FR-GLAXOSMITHKLINE-FR2017199769

PATIENT
  Sex: Female

DRUGS (3)
  1. VOLTARENE (DICLOFENAC SODIUM) [Suspect]
     Active Substance: DICLOFENAC SODIUM
     Indication: PAIN
     Dosage: UNKNOWN
     Route: 048
  2. IBUPROFENE [Suspect]
     Active Substance: IBUPROFEN
     Indication: CLUSTER HEADACHE
     Dosage: UNKNOWN
     Route: 048
  3. APRANAX [Suspect]
     Active Substance: NAPROXEN
     Indication: PAIN
     Dosage: 2 DF, QD
     Route: 048
     Dates: start: 20140305, end: 20140307

REACTIONS (3)
  - Alopecia areata [Recovered/Resolved]
  - Alopecia areata [Recovered/Resolved]
  - Alopecia areata [Recovered/Resolved]

NARRATIVE: CASE EVENT DATE: 201403
